FAERS Safety Report 23957675 (Version 1)
Quarter: 2024Q2

REPORT INFORMATION
  Report Type: Spontaneous
  Country: US (occurrence: US)
  Receive Date: 20240610
  Receipt Date: 20240610
  Transmission Date: 20240715
  Serious: Yes (Hospitalization)
  Sender: FDA-Public Use
  Company Number: US-OTSUKA-2024_015810

PATIENT
  Sex: Female
  Weight: 113.4 kg

DRUGS (1)
  1. ABILIFY [Suspect]
     Active Substance: ARIPIPRAZOLE
     Indication: Major depression
     Dosage: 15 MG, QD
     Route: 065
     Dates: start: 2008

REACTIONS (2)
  - Depression [Unknown]
  - Product availability issue [Unknown]
